FAERS Safety Report 13494703 (Version 2)
Quarter: 2021Q1

REPORT INFORMATION
  Report Type: Report from Study
  Country: US (occurrence: US)
  Receive Date: 20170428
  Receipt Date: 20210219
  Transmission Date: 20210419
  Serious: No
  Sender: FDA-Public Use
  Company Number: PHHY2017US063104

PATIENT
  Sex: Female

DRUGS (1)
  1. GILENYA [Suspect]
     Active Substance: FINGOLIMOD HYDROCHLORIDE
     Indication: EXPOSURE VIA BODY FLUID
     Dosage: PARTNER DOSE: 0.5 MG, QD
     Route: 050

REACTIONS (2)
  - Exposure via partner [Unknown]
  - Normal newborn [Unknown]
